FAERS Safety Report 8534076-7 (Version None)
Quarter: 2012Q3

REPORT INFORMATION
  Report Type: 
  Country: None (occurrence: None)
  Receive Date: 20120724
  Receipt Date: 20120712
  Transmission Date: 20120928
  Serious: No
  Sender: FDA-Public Use
  Company Number: US-009507513-1206USA02222

PATIENT

DRUGS (1)
  1. MAXALT-MLT [Suspect]
     Indication: MIGRAINE
     Dosage: 10 MG, QD
     Route: 048
     Dates: start: 20100101

REACTIONS (1)
  - DRUG INEFFECTIVE [None]
